FAERS Safety Report 9678282 (Version 4)
Quarter: 2013Q4

REPORT INFORMATION
  Report Type: Report from Study
  Country: CA (occurrence: CA)
  Receive Date: 20131108
  Receipt Date: 20131202
  Transmission Date: 20140711
  Serious: Yes (Hospitalization)
  Sender: FDA-Public Use
  Company Number: CA-ROCHE-1276724

PATIENT
  Age: 66 Year
  Sex: Female
  Weight: 85.3 kg

DRUGS (9)
  1. ACTEMRA [Suspect]
     Indication: RHEUMATOID ARTHRITIS
     Route: 042
     Dates: start: 20130909
  2. ACTEMRA [Suspect]
     Route: 042
     Dates: start: 20130917, end: 20131011
  3. FRAGMIN [Suspect]
     Indication: PULMONARY EMBOLISM
     Route: 065
  4. PANTOLOC [Concomitant]
  5. FOLIC ACID [Concomitant]
  6. METHOTREXATE [Concomitant]
  7. NINGXIA RED [Concomitant]
  8. CORTISONE [Concomitant]
     Dosage: AS NEEDED
     Route: 065
  9. TYLENOL #3 (UNITED STATES) [Concomitant]

REACTIONS (5)
  - Pulmonary embolism [Unknown]
  - Blood pressure increased [Unknown]
  - Swelling [Recovered/Resolved]
  - Headache [Recovered/Resolved]
  - Drug hypersensitivity [Unknown]
